FAERS Safety Report 15135244 (Version 3)
Quarter: 2018Q3

REPORT INFORMATION
  Report Type: Spontaneous
  Country: JP (occurrence: JP)
  Receive Date: 20180712
  Receipt Date: 20180726
  Transmission Date: 20181010
  Serious: Yes (Death, Life-Threatening, Other)
  Sender: FDA-Public Use
  Company Number: JP-009507513-1807JPN000275J

PATIENT
  Age: 86 Year
  Sex: Male

DRUGS (6)
  1. SYCREST [Suspect]
     Active Substance: ASENAPINE MALEATE
     Indication: RESTLESSNESS
     Dosage: UNK UNK, PRN
     Route: 048
     Dates: start: 20180614, end: 20180702
  2. REFLEX [Suspect]
     Active Substance: MIRTAZAPINE
     Indication: ANXIETY
     Dosage: 7.5 MG, QD
     Route: 048
     Dates: start: 20180630, end: 20180702
  3. BELSOMRA [Suspect]
     Active Substance: SUVOREXANT
     Indication: INSOMNIA
     Dosage: 15 MG, QD
     Route: 048
     Dates: start: 20180614, end: 20180702
  4. DESYREL [Suspect]
     Active Substance: TRAZODONE HYDROCHLORIDE
     Indication: INSOMNIA
     Dosage: 2.5 MG, QD
     Route: 048
     Dates: start: 20180614, end: 20180702
  5. ABILIFY [Suspect]
     Active Substance: ARIPIPRAZOLE
     Indication: DELIRIUM
     Dosage: 6 MG, QD
     Route: 048
     Dates: start: 20180619, end: 20180702
  6. MEROPENEM. [Suspect]
     Active Substance: MEROPENEM
     Indication: PNEUMONIA
     Dosage: 0.5 G, BID
     Route: 051
     Dates: start: 20180609, end: 20180702

REACTIONS (3)
  - Respiratory failure [Fatal]
  - Agranulocytosis [Fatal]
  - Pneumonia [Fatal]

NARRATIVE: CASE EVENT DATE: 20180701
